FAERS Safety Report 13193746 (Version 2)
Quarter: 2019Q4

REPORT INFORMATION
  Report Type: Spontaneous
  Country: DE (occurrence: DE)
  Receive Date: 20170207
  Receipt Date: 20191021
  Transmission Date: 20200122
  Serious: Yes (Congenital Anomaly, Other)
  Sender: FDA-Public Use
  Company Number: DE-TEVA-734376GER

PATIENT
  Age: 1 Day
  Sex: Male
  Weight: 3.1 kg

DRUGS (10)
  1. FOLIO [Concomitant]
     Active Substance: FOLIC ACID
     Indication: PROPHYLAXIS OF NEURAL TUBE DEFECT
     Dosage: .4 MILLIGRAM DAILY;
     Route: 064
  2. ATOSIL TROPFEN [Concomitant]
     Indication: SLEEP DISORDER
     Route: 064
     Dates: start: 20160111, end: 20160111
  3. AGYRAX [Concomitant]
     Active Substance: MECLIZINE HYDROCHLORIDE
     Indication: NAUSEA
     Dosage: 25 MILLIGRAM DAILY;
     Route: 064
  4. FERRLECIT 62,5 MG [Concomitant]
     Indication: IRON DEFICIENCY
     Dosage: 18 INJECTIONS IN TOTAL
     Route: 064
  5. RENNIE [Concomitant]
     Indication: DYSPEPSIA
     Route: 064
  6. RIOPAN [Concomitant]
     Indication: DYSPEPSIA
     Dosage: 4 OR 5 TIMES ONLY
     Route: 064
  7. SERTRALINE [Suspect]
     Active Substance: SERTRALINE HYDROCHLORIDE
     Indication: DEPRESSION
     Dosage: 100 MILLIGRAM DAILY;
     Route: 064
     Dates: start: 20151128, end: 20160815
  8. LEVODOPA [Concomitant]
     Active Substance: LEVODOPA
     Indication: RESTLESS LEGS SYNDROME
     Dosage: 25 MILLIGRAM DAILY;
     Route: 064
  9. NAUSEMA [Concomitant]
     Indication: NAUSEA
     Route: 064
  10. OMEPRAZOL [Concomitant]
     Active Substance: OMEPRAZOLE
     Indication: DYSPEPSIA
     Dosage: ONLY ONCE DURING THAT TIME
     Route: 064

REACTIONS (6)
  - Respiratory disorder neonatal [Recovered/Resolved]
  - Maternal exposure during pregnancy [Unknown]
  - Atrial septal defect [Unknown]
  - Haemolysis [Unknown]
  - Hyperbilirubinaemia neonatal [Recovered/Resolved]
  - Anaemia [Recovering/Resolving]

NARRATIVE: CASE EVENT DATE: 20160815
